FAERS Safety Report 12190111 (Version 1)
Quarter: 2016Q1

REPORT INFORMATION
  Report Type: Spontaneous
  Country: US (occurrence: None)
  Receive Date: 20160317
  Receipt Date: 20160317
  Transmission Date: 20160526
  Serious: Yes (Disabling)
  Sender: FDA-Public Use
  Company Number: None

PATIENT
  Age: 38 Year
  Sex: Female
  Weight: 71.67 kg

DRUGS (1)
  1. TRINTELLIX [Suspect]
     Active Substance: VORTIOXETINE HYDROBROMIDE
     Indication: BIPOLAR DISORDER
     Dosage: 10MG
     Route: 048
     Dates: start: 20160314, end: 20160316

REACTIONS (7)
  - Irritability [None]
  - Nausea [None]
  - Increased appetite [None]
  - Dyspepsia [None]
  - Insomnia [None]
  - Migraine [None]
  - Impaired work ability [None]

NARRATIVE: CASE EVENT DATE: 20160315
